FAERS Safety Report 18452341 (Version 1)
Quarter: 2020Q4

REPORT INFORMATION
  Report Type: Spontaneous
  Country: US (occurrence: US)
  Receive Date: 20201102
  Receipt Date: 20201102
  Transmission Date: 20210114
  Serious: No
  Sender: FDA-Public Use
  Company Number: US-TAKEDA-US202005738

PATIENT
  Sex: Male
  Weight: 81.63 kg

DRUGS (17)
  1. TRELEGY ELLIPTA [Concomitant]
     Active Substance: FLUTICASONE FUROATE\UMECLIDINIUM BROMIDE\VILANTEROL TRIFENATATE
     Dosage: 62.5 UNK
  2. VASCEPA [Concomitant]
     Active Substance: ICOSAPENT ETHYL
     Indication: PRODUCT USED FOR UNKNOWN INDICATION
     Dosage: 1 GRAM
  3. OPIUM TINCTURE [Concomitant]
     Active Substance: MORPHINE
     Indication: PRODUCT USED FOR UNKNOWN INDICATION
     Dosage: 10 UNK
  4. GATTEX [Suspect]
     Active Substance: TEDUGLUTIDE\WATER
     Dosage: 0.28 MILLILITER, QD
     Route: 058
  5. TRELEGY ELLIPTA [Concomitant]
     Active Substance: FLUTICASONE FUROATE\UMECLIDINIUM BROMIDE\VILANTEROL TRIFENATATE
     Indication: PRODUCT USED FOR UNKNOWN INDICATION
     Dosage: 100 UNK
  6. GATTEX [Suspect]
     Active Substance: TEDUGLUTIDE\WATER
     Dosage: 0.28 MILLILITER, QD
     Route: 058
  7. GATTEX [Suspect]
     Active Substance: TEDUGLUTIDE\WATER
     Dosage: 0.28 MILLILITER, QD
     Route: 058
  8. CIMETIDINE [Concomitant]
     Active Substance: CIMETIDINE
     Indication: PRODUCT USED FOR UNKNOWN INDICATION
     Dosage: 300 MILLIGRAM
  9. GATTEX [Suspect]
     Active Substance: TEDUGLUTIDE\WATER
     Indication: COLITIS ULCERATIVE
     Dosage: 0.45 MILLILITER, 1X/DAY:QD
     Route: 050
  10. GATTEX [Suspect]
     Active Substance: TEDUGLUTIDE\WATER
     Indication: COLITIS ULCERATIVE
     Dosage: 0.45 MILLILITER, 1X/DAY:QD
     Route: 050
  11. TRIAMCINOLONE ACETONIDE. [Concomitant]
     Active Substance: TRIAMCINOLONE ACETONIDE
     Indication: PRODUCT USED FOR UNKNOWN INDICATION
  12. TESTOSTERONE. [Concomitant]
     Active Substance: TESTOSTERONE
     Indication: PRODUCT USED FOR UNKNOWN INDICATION
     Dosage: 50 MILLIGRAM
  13. GATTEX [Suspect]
     Active Substance: TEDUGLUTIDE\WATER
     Indication: COLITIS ULCERATIVE
     Dosage: 0.45 MILLILITER, 1X/DAY:QD
     Route: 050
  14. GATTEX [Suspect]
     Active Substance: TEDUGLUTIDE\WATER
     Dosage: 0.28 MILLILITER, QD
     Route: 058
  15. PROAIR HFA [Concomitant]
     Active Substance: ALBUTEROL SULFATE
     Indication: PRODUCT USED FOR UNKNOWN INDICATION
     Dosage: 90 MICROGRAM
  16. GATTEX [Suspect]
     Active Substance: TEDUGLUTIDE\WATER
     Indication: COLITIS ULCERATIVE
     Dosage: 0.45 MILLILITER, 1X/DAY:QD
     Route: 050
  17. KETOCONAZOLE. [Concomitant]
     Active Substance: KETOCONAZOLE
     Indication: PRODUCT USED FOR UNKNOWN INDICATION

REACTIONS (3)
  - Abdominal pain upper [Recovering/Resolving]
  - Intentional product use issue [Unknown]
  - Product dose omission issue [Unknown]
